FAERS Safety Report 25470117 (Version 1)
Quarter: 2025Q2

REPORT INFORMATION
  Report Type: Spontaneous
  Country: US (occurrence: US)
  Receive Date: 20250623
  Receipt Date: 20250623
  Transmission Date: 20250717
  Serious: Yes (Other)
  Sender: BRACCO
  Company Number: US-BRACCO-2025US00425

PATIENT
  Age: 66 Year
  Sex: Female

DRUGS (1)
  1. PROHANCE [Suspect]
     Active Substance: GADOTERIDOL
     Indication: Magnetic resonance imaging abdominal
     Route: 042
     Dates: start: 20250115, end: 20250115

REACTIONS (8)
  - Loss of consciousness [Unknown]
  - Unresponsive to stimuli [Unknown]
  - Feeling abnormal [Unknown]
  - Eye pruritus [Unknown]
  - Pruritus [Unknown]
  - Skin discolouration [Unknown]
  - Hypotension [Unknown]
  - Peripheral coldness [Unknown]

NARRATIVE: CASE EVENT DATE: 20250115
